FAERS Safety Report 9387318 (Version 5)
Quarter: 2013Q4

REPORT INFORMATION
  Report Type: Spontaneous
  Country: US (occurrence: US)
  Receive Date: 20130708
  Receipt Date: 20131230
  Transmission Date: 20140711
  Serious: Yes (Hospitalization, Congenital Anomaly, Other)
  Sender: FDA-Public Use
  Company Number: US-JNJFOC-20130702329

PATIENT
  Sex: Female

DRUGS (5)
  1. TOPAMAX [Suspect]
     Indication: CONVULSION
     Dosage: MATERNAL DOSE
     Route: 064
     Dates: start: 200701, end: 200705
  2. DEPAKOTE [Suspect]
     Indication: CONVULSION
     Dosage: MATERNAL DOSE
     Route: 064
  3. LEVOTHYROXINE [Suspect]
     Indication: HYPOTHYROIDISM
     Dosage: MATERNAL DOSE
     Route: 064
  4. PRENATAL VITAMINS [Concomitant]
     Indication: PRODUCT USED FOR UNKNOWN INDICATION
     Dosage: MATERNAL DOSE
     Route: 064
  5. FOLATE [Concomitant]
     Indication: PRODUCT USED FOR UNKNOWN INDICATION
     Dosage: MATERNAL DOSE
     Route: 064

REACTIONS (14)
  - Finger deformity [Unknown]
  - Eustachian tube dysfunction [Not Recovered/Not Resolved]
  - Foetal exposure during pregnancy [Recovered/Resolved]
  - Craniosynostosis [Unknown]
  - Atrial septal defect [Unknown]
  - Optic nerve hypoplasia [Recovering/Resolving]
  - Developmental hip dysplasia [Recovering/Resolving]
  - Hypotonia [Unknown]
  - Torticollis [Unknown]
  - Conductive deafness [Recovering/Resolving]
  - Otitis media acute [Unknown]
  - Cleft lip [Unknown]
  - Cleft palate [Recovered/Resolved]
  - Congenital eye disorder [Unknown]
